FAERS Safety Report 6371605-6 (Version None)
Quarter: 2009Q3

REPORT INFORMATION
  Report Type: 
  Country: None (occurrence: None)
  Receive Date: 20090923
  Receipt Date: 20070917
  Transmission Date: 20100115
  Serious: No
  Sender: FDA-Public Use
  Company Number: US-ASTRAZENECA-2007UW18779

PATIENT
  Age: 16832 Day
  Sex: Male
  Weight: 110 kg

DRUGS (7)
  1. SEROQUEL [Suspect]
     Indication: DEPRESSION
     Route: 048
     Dates: start: 20000720
  2. SEROQUEL [Suspect]
     Indication: ANXIETY
     Route: 048
     Dates: start: 20000720
  3. RISPERDAL [Concomitant]
  4. ZYPREXA [Concomitant]
     Dates: start: 20000101, end: 20020101
  5. PAXIL [Concomitant]
     Dosage: 20-30 MG
     Route: 048
  6. NEURONTIN [Concomitant]
     Dosage: 100-300 MG
     Route: 048
  7. CELEBREX [Concomitant]
     Route: 065

REACTIONS (5)
  - ANHEDONIA [None]
  - ARTHRALGIA [None]
  - BACK PAIN [None]
  - DIABETES MELLITUS [None]
  - MENTAL STATUS CHANGES [None]
